FAERS Safety Report 8368099-8 (Version None)
Quarter: 2012Q2

REPORT INFORMATION
  Report Type: 
  Country: None (occurrence: None)
  Receive Date: 20120516
  Receipt Date: 20120504
  Transmission Date: 20120825
  Serious: Yes (Hospitalization, Other)
  Sender: FDA-Public Use
  Company Number: AUR-APL-2012-00218

PATIENT
  Age: 20 Year
  Sex: Female

DRUGS (4)
  1. AMOXICILLIN [Suspect]
     Indication: COUGH
     Dosage: 1500 MG (500 MG,3 IN 1 D)
     Dates: start: 20111226, end: 20111231
  2. SYMBICORT [Concomitant]
  3. ALBUTEROL SULFATE [Concomitant]
  4. PREDNISOLONE [Concomitant]

REACTIONS (3)
  - MATERNAL EXPOSURE DURING PREGNANCY [None]
  - PNEUMONIA [None]
  - EXPIRED DRUG ADMINISTERED [None]
